FAERS Safety Report 4896625-X (Version None)
Quarter: 2005Q4

REPORT INFORMATION
  Report Type: 
  Country: None (occurrence: None)
  Receive Date: 20051223
  Receipt Date: 20050901
  Transmission Date: 20060501
  Serious: No
  Sender: FDA-Public Use
  Company Number: 05P-163-0310066-00

PATIENT
  Age: 58 Year
  Sex: Female
  Weight: 81.6475 kg

DRUGS (11)
  1. HUMIRA [Suspect]
     Indication: RHEUMATOID ARTHRITIS
     Dosage: 40 MG,  1 IN 2 WK, SUBCUTANEOUS
     Route: 058
     Dates: start: 20040101
  2. HYDROCODONE BITARTRATE [Concomitant]
  3. GLIMEPIRIDE [Concomitant]
  4. FOLIC ACID [Concomitant]
  5. FENOFIBRATE [Concomitant]
  6. SALBUTAMOL [Concomitant]
  7. LISINOPRIL [Concomitant]
  8. LESCOL XL [Concomitant]
  9. FLUOXETINE [Concomitant]
  10. HYDROXYZINE [Concomitant]
  11. ADVAIR DISKUS 100/50 [Concomitant]

REACTIONS (3)
  - PRURITUS [None]
  - RASH [None]
  - URTICARIA [None]
